FAERS Safety Report 4722407-5 (Version None)
Quarter: 2005Q3

REPORT INFORMATION
  Report Type: 
  Country: None (occurrence: None)
  Receive Date: 20050722
  Receipt Date: 20050407
  Transmission Date: 20060218
  Serious: No
  Sender: FDA-Public Use
  Company Number: US-GLAXOSMITHKLINE-A0553160A

PATIENT
  Age: 48 Year
  Sex: Male

DRUGS (5)
  1. AVANDIA [Suspect]
     Dosage: 2MG PER DAY
     Route: 048
     Dates: start: 20050220
  2. LANTUS [Suspect]
     Dosage: 10UNIT PER DAY
     Route: 058
     Dates: start: 20050405
  3. BETA BLOCKER [Concomitant]
  4. LIPITOR [Concomitant]
  5. PLAVIX [Concomitant]

REACTIONS (3)
  - EXTRASYSTOLES [None]
  - HEART RATE IRREGULAR [None]
  - HYPERGLYCAEMIA [None]
